FAERS Safety Report 7068431-1 (Version None)
Quarter: 2010Q4

REPORT INFORMATION
  Report Type: 
  Country: None (occurrence: None)
  Receive Date: 20101028
  Receipt Date: 20101018
  Transmission Date: 20110411
  Serious: Yes (Hospitalization)
  Sender: FDA-Public Use
  Company Number: B0681274A

PATIENT
  Sex: Female

DRUGS (2)
  1. AUGMENTIN '125' [Suspect]
     Indication: MASTECTOMY
     Dosage: 2G PER DAY
     Route: 048
     Dates: start: 20100919, end: 20100924
  2. TAMOXIFENE [Suspect]
     Dosage: 20MG PER DAY
     Route: 048
     Dates: start: 20100919, end: 20100924

REACTIONS (1)
  - PRURIGO [None]
